FAERS Safety Report 15709372 (Version 2)
Quarter: 2019Q1

REPORT INFORMATION
  Report Type: Spontaneous
  Country: US (occurrence: US)
  Receive Date: 20181211
  Receipt Date: 20190110
  Transmission Date: 20190417
  Serious: No
  Sender: FDA-Public Use
  Company Number: US-BRISTOL-MYERS SQUIBB COMPANY-BMS-2018-114269

PATIENT
  Sex: Male

DRUGS (2)
  1. MEGACE [Suspect]
     Active Substance: MEGESTROL ACETATE
     Indication: PRODUCT USED FOR UNKNOWN INDICATION
     Dosage: UNK
     Route: 065
  2. VFEND [Suspect]
     Active Substance: VORICONAZOLE
     Indication: INFECTIOUS PLEURAL EFFUSION
     Dosage: 1 TAB, QD
     Route: 048

REACTIONS (2)
  - Decreased appetite [Unknown]
  - Drug hypersensitivity [Unknown]
